FAERS Safety Report 8117710-5 (Version None)
Quarter: 2012Q1

REPORT INFORMATION
  Report Type: 
  Country: None (occurrence: None)
  Receive Date: 20120203
  Receipt Date: 20120203
  Transmission Date: 20120608
  Serious: Yes (Hospitalization)
  Sender: FDA-Public Use
  Company Number: None

PATIENT
  Sex: Female
  Weight: 74.8 kg

DRUGS (3)
  1. CYCLOPHOSPHAMIDE [Suspect]
     Dosage: 5250 MG
     Dates: end: 20070502
  2. TAXOTERE [Suspect]
     Dosage: 786 MG
     Dates: end: 20070502
  3. DOXORUBICIN HCL [Suspect]
     Dosage: 522 MG
     Dates: end: 20070502

REACTIONS (2)
  - BREAST CANCER RECURRENT [None]
  - HEPATIC LESION [None]
